FAERS Safety Report 10470938 (Version 1)
Quarter: 2014Q3

REPORT INFORMATION
  Report Type: Report from Study
  Country: AU (occurrence: AU)
  Receive Date: 20140923
  Receipt Date: 20140923
  Transmission Date: 20150326
  Serious: Yes (Other)
  Sender: FDA-Public Use
  Company Number: PHHY2014AU119634

PATIENT
  Sex: Male
  Weight: 81 kg

DRUGS (4)
  1. ICE                                /06761101/ [Concomitant]
     Dosage: UNK UKN, UNK
  2. CLOZARIL [Suspect]
     Active Substance: CLOZAPINE
     Indication: SCHIZOPHRENIA
     Dosage: 300 MG, (NOCTE)
     Route: 048
     Dates: start: 20140314
  3. OLANZAPINE. [Suspect]
     Active Substance: OLANZAPINE
     Dosage: 10 MG, BID
  4. FLUOXETINE [Suspect]
     Active Substance: FLUOXETINE\FLUOXETINE HYDROCHLORIDE
     Dosage: 30 MG, MANE

REACTIONS (2)
  - Depressed mood [Unknown]
  - Suicidal ideation [Unknown]
